FAERS Safety Report 8359177-8 (Version None)
Quarter: 2012Q2

REPORT INFORMATION
  Report Type: 
  Country: None (occurrence: None)
  Receive Date: 20120511
  Receipt Date: 20120511
  Transmission Date: 20120825
  Serious: Yes (Life-Threatening)
  Sender: FDA-Public Use
  Company Number: None

PATIENT
  Age: 72 Year
  Sex: Female
  Weight: 68.0396 kg

DRUGS (1)
  1. MELOXICAM (MOBIC) [Suspect]
     Indication: BACK PAIN
     Dosage: ONE DAILY MOUTH
     Route: 048
     Dates: start: 20120427

REACTIONS (1)
  - ATRIAL FIBRILLATION [None]
